FAERS Safety Report 8001027-3 (Version None)
Quarter: 2011Q4

REPORT INFORMATION
  Report Type: 
  Country: None (occurrence: None)
  Receive Date: 20111222
  Receipt Date: 20110610
  Transmission Date: 20120403
  Serious: No
  Sender: FDA-Public Use
  Company Number: US-GLAXOSMITHKLINE-A0931669A

PATIENT
  Age: 70 Year
  Sex: Female
  Weight: 56.7 kg

DRUGS (4)
  1. FLONASE [Suspect]
     Indication: PRODUCT USED FOR UNKNOWN INDICATION
     Route: 065
  2. LOTREL [Concomitant]
  3. VITAMIN D [Concomitant]
  4. BACTROBAN [Suspect]
     Indication: PRODUCT USED FOR UNKNOWN INDICATION
     Route: 065

REACTIONS (3)
  - DYSPNOEA EXERTIONAL [None]
  - DRUG HYPERSENSITIVITY [None]
  - DYSPNOEA [None]
